FAERS Safety Report 8540540-7 (Version None)
Quarter: 2012Q3

REPORT INFORMATION
  Report Type: 
  Country: None (occurrence: None)
  Receive Date: 20120726
  Receipt Date: 20110802
  Transmission Date: 20120928
  Serious: No
  Sender: FDA-Public Use
  Company Number: US-ASTRAZENECA-2011SE46100

PATIENT
  Age: 79 Year
  Sex: Female

DRUGS (1)
  1. SEROQUEL XR [Suspect]
     Indication: DEMENTIA
     Route: 048

REACTIONS (10)
  - URINARY TRACT INFECTION [None]
  - HYPERSOMNIA [None]
  - CONSTIPATION [None]
  - LETHARGY [None]
  - TREMOR [None]
  - FEELING ABNORMAL [None]
  - PRURITUS [None]
  - GASTRIC DILATATION [None]
  - ABDOMINAL DISCOMFORT [None]
  - OFF LABEL USE [None]
